FAERS Safety Report 16893251 (Version 1)
Quarter: 2019Q4

REPORT INFORMATION
  Report Type: Spontaneous
  Country: JP (occurrence: JP)
  Receive Date: 20191008
  Receipt Date: 20191008
  Transmission Date: 20200122
  Serious: Yes (Other)
  Sender: FDA-Public Use
  Company Number: JP-PFIZER INC-2019430454

PATIENT
  Age: 72 Year
  Sex: Male
  Weight: 61 kg

DRUGS (23)
  1. CAMPTO [Suspect]
     Active Substance: IRINOTECAN
     Dosage: 160 MG/M2,(ONCE IN 3WEEKS)
     Route: 041
     Dates: start: 20181227, end: 20190207
  2. FLUOROURACIL. [Concomitant]
     Active Substance: FLUOROURACIL
     Dosage: 3000 MG/M2, UNK
     Route: 042
     Dates: start: 20181129
  3. ELPLAT [Suspect]
     Active Substance: OXALIPLATIN
     Indication: RECTAL CANCER
     Dosage: UNK
     Route: 041
     Dates: start: 201704, end: 201810
  4. ELPLAT [Suspect]
     Active Substance: OXALIPLATIN
     Dosage: UNK
     Route: 065
  5. LEVOFOLINATE YAKULT [Suspect]
     Active Substance: LEVOLEUCOVORIN CALCIUM
     Dosage: 320 MG/M2, SINGLE
     Route: 041
     Dates: start: 20181129, end: 20181129
  6. FLUOROURACIL. [Concomitant]
     Active Substance: FLUOROURACIL
     Dosage: 3200 MG/M2, EVERY 3 WEEKS
     Route: 042
     Dates: start: 20181227, end: 20190207
  7. LEVOFOLINATE YAKULT [Suspect]
     Active Substance: LEVOLEUCOVORIN CALCIUM
     Dosage: 320 MG/M2, EVERY 3 WEEKS
     Route: 041
     Dates: start: 20181227, end: 20190207
  8. CAMPTO [Suspect]
     Active Substance: IRINOTECAN
     Dosage: 170 MG/M2, SINGLE
     Route: 041
     Dates: start: 20181129, end: 20181129
  9. ZALTRAP [Suspect]
     Active Substance: ZIV-AFLIBERCEPT
     Indication: RECTAL CANCER
     Dosage: 244 MG, SINGLE
     Route: 041
     Dates: start: 20181018, end: 20181018
  10. ZALTRAP [Suspect]
     Active Substance: ZIV-AFLIBERCEPT
     Dosage: 244 MG, CYCLIC (ONCE IN 2WEEKS)
     Route: 041
     Dates: start: 20181115, end: 20181129
  11. FLUOROURACIL. [Concomitant]
     Active Substance: FLUOROURACIL
     Dosage: 645 MG/M2, UNK
     Route: 040
     Dates: start: 20181018
  12. FLUOROURACIL. [Concomitant]
     Active Substance: FLUOROURACIL
     Dosage: 3200 MG/M2, UNK
     Route: 042
     Dates: start: 20181115
  13. DEXAMETHASONE SODIUM PHOSPHATE. [Concomitant]
     Active Substance: DEXAMETHASONE SODIUM PHOSPHATE
     Dosage: UNK
  14. FLUOROURACIL. [Concomitant]
     Active Substance: FLUOROURACIL
     Indication: RECTAL CANCER
     Dosage: 3800 MG/M2, UNK
     Route: 042
     Dates: start: 20181018
  15. CAMPTO [Suspect]
     Active Substance: IRINOTECAN
     Indication: RECTAL CANCER
     Dosage: 240 MG/M2, SINGLE
     Route: 041
     Dates: start: 20181018, end: 20181018
  16. CAMPTO [Suspect]
     Active Substance: IRINOTECAN
     Dosage: 200 MG/M2, SINGLE
     Route: 041
     Dates: start: 20181115, end: 20181115
  17. LEVOFOLINATE YAKULT [Suspect]
     Active Substance: LEVOLEUCOVORIN CALCIUM
     Indication: RECTAL CANCER
     Dosage: 320 MG/M2, SINGLE
     Route: 041
     Dates: start: 20181018, end: 20181018
  18. LEVOFOLINATE YAKULT [Suspect]
     Active Substance: LEVOLEUCOVORIN CALCIUM
     Dosage: 200 MG/M2, SINGLE
     Route: 041
     Dates: start: 20181115, end: 20181115
  19. 5-FU [FLUOROURACIL] [Concomitant]
     Active Substance: FLUOROURACIL
     Indication: RECTAL CANCER
     Dosage: UNK
     Dates: start: 201704, end: 201810
  20. LEUCOVORIN [CALCIUM FOLINATE] [Concomitant]
     Active Substance: LEUCOVORIN
     Indication: RECTAL CANCER
     Dosage: UNK
     Dates: start: 201704, end: 201810
  21. PANITUMUMAB [Concomitant]
     Active Substance: PANITUMUMAB
     Indication: RECTAL CANCER
     Dosage: UNK
     Dates: start: 201704, end: 201810
  22. ZALTRAP [Suspect]
     Active Substance: ZIV-AFLIBERCEPT
     Dosage: 244 MG, EVERY 3 WEEKS
     Route: 041
     Dates: start: 20181227, end: 20190207
  23. LIXIANA [Concomitant]
     Active Substance: EDOXABAN TOSYLATE
     Dosage: UNK

REACTIONS (7)
  - Neuropathy peripheral [Not Recovered/Not Resolved]
  - Epistaxis [Recovering/Resolving]
  - Lymphoedema [Not Recovered/Not Resolved]
  - Pyrexia [Recovering/Resolving]
  - White blood cell count decreased [Unknown]
  - Constipation [Recovering/Resolving]
  - Neutrophil count decreased [Not Recovered/Not Resolved]

NARRATIVE: CASE EVENT DATE: 20181018
